FAERS Safety Report 7386482-4 (Version None)
Quarter: 2011Q1

REPORT INFORMATION
  Report Type: 
  Country: None (occurrence: None)
  Receive Date: 20110323
  Receipt Date: 20110314
  Transmission Date: 20110831
  Serious: Yes (Death)
  Sender: FDA-Public Use
  Company Number: 860412

PATIENT
  Age: 64 Year
  Sex: Female

DRUGS (6)
  1. KALPRESS [Concomitant]
  2. COROPRES [Concomitant]
  3. DOCETAXEL [Suspect]
     Indication: BREAST CANCER
     Dosage: 145 MILLIGRAM(S), INTRAVENOUS
     Route: 042
     Dates: start: 20110201, end: 20110201
  4. HERCEPTIN [Suspect]
     Indication: BREAST CANCER
     Dosage: 564 MG MILLIGRAM(S), INTRAVENOUS
     Route: 042
     Dates: start: 20110201, end: 20110201
  5. CARBOPLATIN [Suspect]
     Indication: BREAST CANCER
     Dosage: 590 MG (MILLIGRAM(S) INTRAVENOUS
     Route: 042
     Dates: start: 20110201, end: 20110201
  6. PRAVASTATIN [Concomitant]

REACTIONS (2)
  - AGRANULOCYTOSIS [None]
  - SEPTIC SHOCK [None]
